FAERS Safety Report 4948614-4 (Version None)
Quarter: 2006Q1

REPORT INFORMATION
  Report Type: 
  Country: None (occurrence: None)
  Receive Date: 20060313
  Receipt Date: 20060308
  Transmission Date: 20060701
  Serious: Yes (Hospitalization)
  Sender: FDA-Public Use
  Company Number: 2006029773

PATIENT
  Age: 72 Year
  Sex: Male

DRUGS (1)
  1. ATARAX [Suspect]
     Indication: SEDATION
     Dosage: 200 MG DAILY, ORAL
     Route: 048
     Dates: start: 20050120, end: 20050131

REACTIONS (40)
  - ACUTE PULMONARY OEDEMA [None]
  - ANAEMIA [None]
  - ANGIOPATHY [None]
  - ARRHYTHMIA SUPRAVENTRICULAR [None]
  - ASTHENIA [None]
  - BICYTOPENIA [None]
  - BRONCHIAL OBSTRUCTION [None]
  - CYTOMEGALOVIRUS INFECTION [None]
  - DEHYDRATION [None]
  - DERMATITIS EXFOLIATIVE [None]
  - DIALYSIS [None]
  - DRUG HYPERSENSITIVITY [None]
  - DRUG RASH WITH EOSINOPHILIA AND SYSTEMIC SYMPTOMS [None]
  - DYSPHONIA [None]
  - EOSINOPHILIA [None]
  - FATIGUE [None]
  - FOREIGN BODY ASPIRATION [None]
  - GENERAL PHYSICAL HEALTH DETERIORATION [None]
  - GENERALISED ERYTHEMA [None]
  - HAEMODYNAMIC INSTABILITY [None]
  - HAEMOLYSIS [None]
  - HAEMOLYTIC ANAEMIA [None]
  - HISTIOCYTOSIS HAEMATOPHAGIC [None]
  - HYPERBILIRUBINAEMIA [None]
  - HYPOVOLAEMIA [None]
  - LARYNGEAL DISORDER [None]
  - LUNG DISORDER [None]
  - MALNUTRITION [None]
  - MITRAL VALVE CALCIFICATION [None]
  - MITRAL VALVE REPLACEMENT [None]
  - MULTI-ORGAN FAILURE [None]
  - NECROSIS [None]
  - NEUROMYOPATHY [None]
  - PRURITUS [None]
  - PSEUDOMONAS INFECTION [None]
  - RENAL FAILURE ACUTE [None]
  - RENAL TUBULAR DISORDER [None]
  - SEPTIC SHOCK [None]
  - SKIN EXFOLIATION [None]
  - SYSTEMIC INFLAMMATORY RESPONSE SYNDROME [None]
